FAERS Safety Report 15295305 (Version 13)
Quarter: 2019Q2

REPORT INFORMATION
  Report Type: Report from Study
  Country: US (occurrence: US)
  Receive Date: 20180820
  Receipt Date: 20190401
  Transmission Date: 20190711
  Serious: Yes (Hospitalization, Other)
  Sender: FDA-Public Use
  Company Number: US-CLOVIS ONCOLOGY-CLO-2018-000866

PATIENT
  Age: 49 Year
  Sex: Female

DRUGS (11)
  1. RUBRACA [Suspect]
     Active Substance: RUCAPARIB CAMSYLATE
     Dosage: 300 MG, BID
     Route: 048
     Dates: start: 20181011, end: 20181222
  2. RUBRACA [Suspect]
     Active Substance: RUCAPARIB CAMSYLATE
     Dosage: 600 MG, BID
     Dates: start: 20190115
  3. RUBRACA [Suspect]
     Active Substance: RUCAPARIB CAMSYLATE
     Dosage: 600 MG, BID
     Route: 048
     Dates: start: 20180710, end: 20180913
  4. RUBRACA [Suspect]
     Active Substance: RUCAPARIB CAMSYLATE
     Dosage: 600 MG, BID
     Route: 048
     Dates: start: 20180710, end: 20181010
  5. RUBRACA [Suspect]
     Active Substance: RUCAPARIB CAMSYLATE
     Dosage: UNK
     Dates: start: 20181221
  6. RUBRACA [Suspect]
     Active Substance: RUCAPARIB CAMSYLATE
     Dosage: UNK
     Dates: start: 20180709, end: 20181217
  7. RUBRACA [Suspect]
     Active Substance: RUCAPARIB CAMSYLATE
     Dosage: 300 MG, BID
     Route: 048
     Dates: start: 20181011, end: 20190208
  8. ONDANSETRON [Concomitant]
     Active Substance: ONDANSETRON
     Indication: PRODUCT USED FOR UNKNOWN INDICATION
     Dosage: 8 MG, UNK
     Dates: start: 20170627
  9. RUBRACA [Suspect]
     Active Substance: RUCAPARIB CAMSYLATE
     Dosage: 300 MG, BID
     Route: 048
     Dates: start: 20181011
  10. RUBRACA [Suspect]
     Active Substance: RUCAPARIB CAMSYLATE
     Dosage: 300 MG, BID
     Route: 048
     Dates: start: 20180710
  11. RUBRACA [Suspect]
     Active Substance: RUCAPARIB CAMSYLATE
     Indication: OVARIAN CANCER
     Dosage: 600 MG, BID
     Route: 048
     Dates: start: 20180709

REACTIONS (25)
  - Abdominal pain [Recovered/Resolved]
  - Abdominal pain [Recovering/Resolving]
  - Enterocutaneous fistula [Unknown]
  - Anaemia [Unknown]
  - Muscular weakness [Not Recovered/Not Resolved]
  - Blister [Recovered/Resolved]
  - Blood magnesium decreased [Unknown]
  - Pneumonia aspiration [Recovered/Resolved]
  - Intestinal fistula infection [Recovered/Resolved]
  - White blood cell count decreased [Recovered/Resolved]
  - Tumour marker increased [Unknown]
  - Fatigue [Recovering/Resolving]
  - Nausea [Recovered/Resolved]
  - Hypophagia [Unknown]
  - Abdominal pain upper [Recovered/Resolved]
  - Vomiting [Recovered/Resolved]
  - Device related infection [Not Recovered/Not Resolved]
  - Platelet count decreased [Recovered/Resolved]
  - Productive cough [Unknown]
  - Neutrophil count decreased [Recovering/Resolving]
  - Neuropathy peripheral [Recovered/Resolved]
  - Abdominal pain [Recovering/Resolving]
  - Muscle spasms [Not Recovered/Not Resolved]
  - Dyspnoea [Not Recovered/Not Resolved]
  - Sunburn [Recovered/Resolved]

NARRATIVE: CASE EVENT DATE: 2018
